FAERS Safety Report 12582230 (Version 1)
Quarter: 2016Q3

REPORT INFORMATION
  Report Type: Spontaneous
  Country: US (occurrence: US)
  Receive Date: 20160722
  Receipt Date: 20160722
  Transmission Date: 20161109
  Serious: No
  Sender: FDA-Public Use
  Company Number: US-TEVA-672407ACC

PATIENT
  Age: 24 Year
  Sex: Female
  Weight: 72.64 kg

DRUGS (1)
  1. PARAGARD T 380A [Suspect]
     Active Substance: COPPER
     Indication: CONTRACEPTION
     Dates: start: 201510, end: 20160317

REACTIONS (5)
  - Fatigue [Not Recovered/Not Resolved]
  - Vaginal haemorrhage [Recovered/Resolved]
  - Dysmenorrhoea [Recovered/Resolved]
  - Menstruation delayed [Recovered/Resolved]
  - Nausea [Not Recovered/Not Resolved]

NARRATIVE: CASE EVENT DATE: 201510
